FAERS Safety Report 12099601 (Version 4)
Quarter: 2017Q2

REPORT INFORMATION
  Report Type: Spontaneous
  Country: US (occurrence: US)
  Receive Date: 20160222
  Receipt Date: 20170519
  Transmission Date: 20170829
  Serious: No
  Sender: FDA-Public Use
  Company Number: US-TEVA-632964USA

PATIENT
  Age: 65 Year
  Sex: Male

DRUGS (13)
  1. RAMIPRIL. [Concomitant]
     Active Substance: RAMIPRIL
  2. FLOVENT [Concomitant]
     Active Substance: FLUTICASONE PROPIONATE
  3. VISICARE [Concomitant]
  4. SPIRIVA [Concomitant]
     Active Substance: TIOTROPIUM BROMIDE MONOHYDRATE
  5. BREO ELLIPTA INH [Concomitant]
  6. CELECOXIB. [Concomitant]
     Active Substance: CELECOXIB
  7. COPAXONE [Suspect]
     Active Substance: GLATIRAMER ACETATE
     Indication: MULTIPLE SCLEROSIS
     Route: 058
     Dates: start: 20150813
  8. HYDROCHLOROTHIAZIDE. [Concomitant]
     Active Substance: HYDROCHLOROTHIAZIDE
  9. MONTELUKAST [Concomitant]
     Active Substance: MONTELUKAST SODIUM
  10. DOXYCYCLINE HYDROCHLORIDE [Concomitant]
     Active Substance: DOXYCYCLINE HYDROCHLORIDE
  11. ALLEGRA [Concomitant]
     Active Substance: FEXOFENADINE HYDROCHLORIDE
  12. SYNVISC [Concomitant]
     Active Substance: HYALURONATE SODIUM
  13. VALSARTAN. [Concomitant]
     Active Substance: VALSARTAN

REACTIONS (2)
  - Dyspnoea [Unknown]
  - Balance disorder [Unknown]

NARRATIVE: CASE EVENT DATE: 20160102
